FAERS Safety Report 25511008 (Version 1)
Quarter: 2025Q3

REPORT INFORMATION
  Report Type: Spontaneous
  Country: US (occurrence: US)
  Receive Date: 20250703
  Receipt Date: 20250703
  Transmission Date: 20251020
  Serious: No
  Sender: RADIUS PHARM
  Company Number: US-RADIUS HEALTH INC.-2024US006269

PATIENT
  Age: 74 Year
  Sex: Female

DRUGS (1)
  1. TYMLOS [Suspect]
     Active Substance: ABALOPARATIDE
     Indication: Product used for unknown indication
     Dates: start: 202303

REACTIONS (6)
  - Pain [Not Recovered/Not Resolved]
  - Spinal fracture [Recovered/Resolved]
  - Gallbladder disorder [Recovered/Resolved]
  - Abdominal distension [Not Recovered/Not Resolved]
  - Dry eye [Unknown]
  - Intentional dose omission [Unknown]
